FAERS Safety Report 8001905-5 (Version None)
Quarter: 2011Q4

REPORT INFORMATION
  Report Type: 
  Country: None (occurrence: None)
  Receive Date: 20111222
  Receipt Date: 20111214
  Transmission Date: 20120403
  Serious: No
  Sender: FDA-Public Use
  Company Number: US-UCBSA-047738

PATIENT
  Age: 27 Year
  Sex: Female

DRUGS (1)
  1. VIMPAT [Suspect]
     Dosage: 150 MG

REACTIONS (3)
  - SYNCOPE [None]
  - HEAD INJURY [None]
  - ASTHENIA [None]
